FAERS Safety Report 12883643 (Version 2)
Quarter: 2016Q4

REPORT INFORMATION
  Report Type: Spontaneous
  Country: US (occurrence: US)
  Receive Date: 20161025
  Receipt Date: 20161229
  Transmission Date: 20170207
  Serious: No
  Sender: FDA-Public Use
  Company Number: US-009507513-1610USA008396

PATIENT

DRUGS (1)
  1. ZERBAXA [Suspect]
     Active Substance: CEFTOLOZANE SULFATE\TAZOBACTAM SODIUM
     Dosage: FORMULATION: 4.5 G ADDED TO 240 ML WITH NORMAL SALINE AND ADMINISTERED OVER 24 HOURS (CONTINUOUS)
     Route: 041

REACTIONS (2)
  - Product use issue [Unknown]
  - No adverse event [Unknown]
